FAERS Safety Report 11315800 (Version 6)
Quarter: 2015Q4

REPORT INFORMATION
  Report Type: Report from Study
  Country: ZA (occurrence: ZA)
  Receive Date: 20150728
  Receipt Date: 20151020
  Transmission Date: 20160304
  Serious: Yes (Life-Threatening, Hospitalization, Other)
  Sender: FDA-Public Use
  Company Number: ZA-ABBVIE-15K-143-1431549-00

PATIENT
  Age: 42 Year
  Sex: Female
  Weight: 69 kg

DRUGS (4)
  1. HUMIRA [Suspect]
     Active Substance: ADALIMUMAB
     Dosage: WEEK 4
     Route: 058
     Dates: end: 201507
  2. AZASAN [Suspect]
     Active Substance: AZATHIOPRINE
     Indication: PRODUCT USED FOR UNKNOWN INDICATION
     Route: 048
     Dates: start: 20130117
  3. HUMIRA [Suspect]
     Active Substance: ADALIMUMAB
     Indication: COLITIS ULCERATIVE
     Dosage: WEEK 2
     Route: 058
  4. HUMIRA [Suspect]
     Active Substance: ADALIMUMAB
     Indication: CROHN^S DISEASE
     Dosage: WEEK 0
     Route: 058
     Dates: start: 20150523, end: 20150523

REACTIONS (5)
  - Gastrointestinal infection [Recovering/Resolving]
  - Anaemia [Recovering/Resolving]
  - Tuberculosis of genitourinary system [Recovering/Resolving]
  - Septic shock [Recovered/Resolved]
  - Tuberculosis gastrointestinal [Recovered/Resolved]

NARRATIVE: CASE EVENT DATE: 20150717
